FAERS Safety Report 7981725 (Version 2)
Quarter: 2012Q4

REPORT INFORMATION
  Report Type: 
  Country: CA (occurrence: CA)
  Receive Date: 20110608
  Receipt Date: 20121109
  Transmission Date: 20130627
  Serious: Yes (Other)
  Sender: FDA-Public Use
  Company Number: PHMT2006CA01169

PATIENT
  Sex: Male

DRUGS (8)
  1. SANDOSTATIN LAR [Suspect]
     Indication: HEPATIC NEOPLASM MALIGNANT NON-RESECTABLE
     Dosage: 20mg every 4 weeks
     Dates: start: 20050810
  2. LACTULOSE [Concomitant]
  3. LASIX [Concomitant]
  4. PANTOLOC [Concomitant]
  5. PRANDASE [Concomitant]
  6. PROPANOLOL [Concomitant]
  7. GLYBURIDE [Concomitant]
  8. METFORMIN HYDROCHLORIDE [Concomitant]

REACTIONS (12)
  - Gastrointestinal disorder [Unknown]
  - Diarrhoea [Recovering/Resolving]
  - Renal disorder [Unknown]
  - Blood test abnormal [Unknown]
  - Hyperglycaemia [Unknown]
  - Blood glucose increased [Not Recovered/Not Resolved]
  - Confusional state [Unknown]
  - Tremor [Unknown]
  - Vision blurred [Unknown]
  - Gait disturbance [Unknown]
  - Dizziness [Unknown]
  - Weight decreased [Unknown]
